FAERS Safety Report 24991049 (Version 1)
Quarter: 2025Q1

REPORT INFORMATION
  Report Type: Report from Study
  Country: US (occurrence: US)
  Receive Date: 20250220
  Receipt Date: 20250220
  Transmission Date: 20250409
  Serious: Yes (Other)
  Sender: UPSHER SMITH LABORATORIES
  Company Number: US-UPSHER-SMITH LABORATORIES, LLC-20250200578

PATIENT
  Sex: Female
  Weight: 50.794 kg

DRUGS (3)
  1. ISOTRETINOIN [Suspect]
     Active Substance: ISOTRETINOIN
     Indication: Acne
     Route: 048
     Dates: start: 20250110, end: 20250212
  2. Isotretinoina sun [Concomitant]
     Indication: Product used for unknown indication
     Route: 065
  3. YAZ [Concomitant]
     Active Substance: DROSPIRENONE\ETHINYL ESTRADIOL
     Indication: Contraception
     Route: 065

REACTIONS (2)
  - Mood altered [Unknown]
  - Lip dry [Unknown]

NARRATIVE: CASE EVENT DATE: 20250101
